FAERS Safety Report 23698108 (Version 2)
Quarter: 2024Q2

REPORT INFORMATION
  Report Type: Spontaneous
  Country: CN (occurrence: CN)
  Receive Date: 20240402
  Receipt Date: 20240403
  Transmission Date: 20240716
  Serious: Yes (Life-Threatening, Hospitalization)
  Sender: FDA-Public Use
  Company Number: CN-BAYER-2024A046969

PATIENT
  Age: 32 Year
  Sex: Male
  Weight: 58 kg

DRUGS (4)
  1. GLUCOBAY [Interacting]
     Active Substance: ACARBOSE
     Indication: Type 2 diabetes mellitus
     Dosage: 100 MG, TID, CHEWING
     Route: 048
     Dates: start: 20240321, end: 20240321
  2. GLUCOBAY [Interacting]
     Active Substance: ACARBOSE
     Indication: Type 2 diabetes mellitus
     Dosage: 50 MG, TID, CHEWING
     Route: 048
     Dates: start: 20240322
  3. INSULIN ASPART [Interacting]
     Active Substance: INSULIN ASPART
     Indication: Type 2 diabetes mellitus
     Dosage: 16 IU, TID
     Route: 058
     Dates: start: 20240321, end: 20240321
  4. INSULIN ASPART [Interacting]
     Active Substance: INSULIN ASPART
     Indication: Type 2 diabetes mellitus
     Dosage: 10 IU, TID
     Route: 058
     Dates: start: 20240322

REACTIONS (3)
  - Hypoglycaemia [Recovering/Resolving]
  - Palpitations [None]
  - Hyperhidrosis [None]

NARRATIVE: CASE EVENT DATE: 20240321
